FAERS Safety Report 8785789 (Version 2)
Quarter: 2012Q4

REPORT INFORMATION
  Report Type: 
  Country: JP (occurrence: JP)
  Receive Date: 20120914
  Receipt Date: 20121219
  Transmission Date: 20130627
  Serious: Yes (Life-Threatening, Hospitalization)
  Sender: FDA-Public Use
  Company Number: JP-GLAXOSMITHKLINE-B0826789A

PATIENT
  Age: 64 Year
  Sex: Female
  Weight: 35 kg

DRUGS (12)
  1. LAMICTAL [Suspect]
     Indication: BIPOLAR II DISORDER
     Dosage: 50MG Per day
     Route: 048
     Dates: start: 20120612, end: 20120625
  2. LAMICTAL [Suspect]
     Indication: BIPOLAR II DISORDER
     Dosage: 50MG Twice per day
     Route: 048
     Dates: start: 20120626, end: 20120709
  3. LAMICTAL [Suspect]
     Indication: BIPOLAR II DISORDER
     Dosage: 100MG Twice per day
     Route: 048
     Dates: start: 20120710, end: 20120716
  4. TEGRETOL [Suspect]
     Indication: BIPOLAR II DISORDER
     Dosage: 100MG Three times per day
     Route: 048
     Dates: start: 20111208, end: 20120625
  5. TEGRETOL [Suspect]
     Indication: BIPOLAR II DISORDER
     Route: 048
     Dates: start: 20120626, end: 20120712
  6. TEGRETOL [Suspect]
     Indication: BIPOLAR II DISORDER
     Dosage: 100MG Per day
     Route: 048
     Dates: start: 20120713, end: 20120716
  7. ZYPREXA [Concomitant]
     Indication: BIPOLAR II DISORDER
     Dosage: 5MG Per day
     Route: 048
     Dates: start: 20120302
  8. JZOLOFT [Concomitant]
     Indication: DEPRESSION
     Dosage: 100MG Per day
     Route: 048
     Dates: start: 20111208, end: 20120820
  9. MEILAX [Concomitant]
     Indication: ANXIETY
     Dosage: 1MG Per day
     Route: 048
     Dates: start: 20111208, end: 20120806
  10. PURSENNID [Concomitant]
     Indication: CONSTIPATION
     Dosage: 24MG Per day
     Route: 048
     Dates: start: 20111215
  11. METLIGINE [Concomitant]
     Indication: ORTHOSTATIC HYPOTENSION
     Dosage: 2MG Twice per day
     Route: 048
     Dates: start: 20111208
  12. URALYT [Concomitant]
     Dosage: 3IUAX Three times per day
     Route: 048

REACTIONS (6)
  - Drug eruption [Recovered/Resolved]
  - Erythema [Recovered/Resolved]
  - Mucosal erosion [Recovered/Resolved]
  - Stomatitis [Recovered/Resolved]
  - Mouth haemorrhage [Recovered/Resolved]
  - Erythema [Recovered/Resolved]
